FAERS Safety Report 7481587-1 (Version None)
Quarter: 2011Q2

REPORT INFORMATION
  Report Type: 
  Country: None (occurrence: None)
  Receive Date: 20110516
  Receipt Date: 20110511
  Transmission Date: 20111010
  Serious: Yes (Other)
  Sender: FDA-Public Use
  Company Number: JP-SANOFI-AVENTIS-2011SA029424

PATIENT
  Age: 57 Year
  Sex: Male

DRUGS (9)
  1. DOCETAXEL [Suspect]
     Dosage: THE PATIENT RECIEVED THE SECONC COURSE OF CHEMOTHERAPY ON 12 MARCH.80 MG/BODY
     Route: 065
  2. DOCETAXEL [Suspect]
     Dosage: THE PATIENT RECIEVED THE SECONC COURSE OF CHEMOTHERAPY ON 12 MARCH.80 MG/BODY
     Route: 065
  3. THERAPEUTIC RADIOPHARMACEUTICALS [Concomitant]
     Dosage: FROM FEB 16 TO APRIL 269.2 GY, 58 FR
     Route: 065
  4. NEDAPLATIN [Suspect]
     Dosage: DOSAGE REPORTED: 120MG PER BODYTHERAPY DATE: FEBRUARY 12.
     Route: 065
  5. NEDAPLATIN [Suspect]
     Dosage: THE PATIENT RECIEVED THE SECOND COURSE OF CHEMOTHERAPY ON 12 MARCH.120 MG/BODY
     Route: 065
  6. DOCETAXEL [Suspect]
     Indication: TONSIL CANCER
     Dosage: THE PATIENT RECIEVED 80 MG/BODY.THE PATIENT RECIEVED THE FIRST COURSE OF CHEMOTHERAPY ON 12 FEB.
     Route: 065
  7. DOCETAXEL [Suspect]
     Dosage: THE PATIENT RECIEVED 80 MG/BODY.THE PATIENT RECIEVED THE FIRST COURSE OF CHEMOTHERAPY ON 12 FEB.
     Route: 065
  8. NEDAPLATIN [Suspect]
     Indication: TONSIL CANCER
     Dosage: THE PATIENT RECIEVED THE SECOND COURSE OF CHEMOTHERAPY ON 12 MARCH.120 MG/BODY
     Route: 065
  9. NEDAPLATIN [Suspect]
     Dosage: DOSAGE REPORTED: 120MG PER BODYTHERAPY DATE: FEBRUARY 12.
     Route: 065

REACTIONS (4)
  - PNEUMATOSIS INTESTINALIS [None]
  - ILEUS [None]
  - GASTROINTESTINAL DISORDER [None]
  - DIARRHOEA [None]
